FAERS Safety Report 9277819 (Version 1)
Quarter: 2013Q2

REPORT INFORMATION
  Report Type: Report from Study
  Country: US (occurrence: US)
  Receive Date: 20130508
  Receipt Date: 20130508
  Transmission Date: 20140414
  Serious: No
  Sender: FDA-Public Use
  Company Number: PHEH2013US010039

PATIENT
  Sex: Male

DRUGS (6)
  1. TASIGNA [Suspect]
  2. BENAZEPRIL [Concomitant]
     Dosage: 5 MG, UNK
  3. CARVEDILOL [Concomitant]
     Dosage: 12.5 MG, UNK
  4. ASA [Concomitant]
     Dosage: 81 MG, UNK
  5. TUMS [Concomitant]
     Dosage: 500 MG, UNK
  6. ATIVAN [Concomitant]
     Dosage: 0.5 MG, UNK

REACTIONS (4)
  - Pruritus [Unknown]
  - Alopecia [Unknown]
  - Skin disorder [Unknown]
  - Fatigue [Unknown]
